APPROVED DRUG PRODUCT: TOLVAPTAN
Active Ingredient: TOLVAPTAN
Strength: 15MG
Dosage Form/Route: TABLET;ORAL
Application: A216949 | Product #001 | TE Code: AB1
Applicant: MSN LABORATORIES PRIVATE LTD
Approved: Jun 21, 2023 | RLD: No | RS: No | Type: RX